FAERS Safety Report 9552710 (Version 1)
Quarter: 2013Q3

REPORT INFORMATION
  Report Type: Spontaneous
  Country: US (occurrence: US)
  Receive Date: 20130925
  Receipt Date: 20130925
  Transmission Date: 20140515
  Serious: No
  Sender: FDA-Public Use
  Company Number: US-PURDUE-USA-2012-0093585

PATIENT
  Sex: Male

DRUGS (3)
  1. MORPHINE SULFATE EXTENDED-RELEASE TABLETS (RHODES 74-862) [Suspect]
     Indication: BACK PAIN
     Dosage: 15 MG, 4-5 TIMES DAILY
     Route: 048
  2. DICLOFENAC [Concomitant]
     Indication: DYSPEPSIA
     Dosage: 75 MG, BID
     Route: 048
  3. OMEPRAZOLE ACID REDUCER [Suspect]
     Indication: DYSPEPSIA
     Dosage: 20 MG, DAILY
     Route: 048

REACTIONS (3)
  - Chromaturia [Not Recovered/Not Resolved]
  - Hyperhidrosis [Unknown]
  - Drug effect decreased [Not Recovered/Not Resolved]
